FAERS Safety Report 6133196-4 (Version None)
Quarter: 2009Q1

REPORT INFORMATION
  Report Type: 
  Country: None (occurrence: None)
  Receive Date: 20090325
  Receipt Date: 20090325
  Transmission Date: 20090719
  Serious: Yes (Other)
  Sender: FDA-Public Use
  Company Number: None

PATIENT
  Age: 51 Year
  Sex: Female
  Weight: 83.9154 kg

DRUGS (1)
  1. ACTONEL [Suspect]
     Indication: OSTEOPENIA
     Dosage: 1 TABLET MONTHLY PO
     Route: 048
     Dates: start: 20090317, end: 20090317

REACTIONS (6)
  - CHILLS [None]
  - FATIGUE [None]
  - INFLUENZA [None]
  - MOVEMENT DISORDER [None]
  - MYALGIA [None]
  - PAIN [None]
